FAERS Safety Report 12704037 (Version 2)
Quarter: 2016Q3

REPORT INFORMATION
  Report Type: Report from Study
  Country: US (occurrence: US)
  Receive Date: 20160831
  Receipt Date: 20160904
  Transmission Date: 20161109
  Serious: No
  Sender: FDA-Public Use
  Company Number: US-AMGEN-USASL2016111647

PATIENT
  Age: 26 Year
  Sex: Male

DRUGS (3)
  1. ENBREL [Suspect]
     Active Substance: ETANERCEPT
     Indication: RHEUMATOID ARTHRITIS
  2. ENBREL [Suspect]
     Active Substance: ETANERCEPT
     Indication: PSORIASIS
  3. ENBREL [Suspect]
     Active Substance: ETANERCEPT
     Indication: PSORIATIC ARTHROPATHY
     Dosage: 50 MG, WEEKLY
     Route: 065
     Dates: start: 2008

REACTIONS (7)
  - Localised infection [Unknown]
  - Throat irritation [Not Recovered/Not Resolved]
  - Pain [Unknown]
  - Cough [Not Recovered/Not Resolved]
  - Incorrect product storage [Unknown]
  - Drug dose omission [Unknown]
  - Fear [Unknown]

NARRATIVE: CASE EVENT DATE: 2009
